FAERS Safety Report 10040634 (Version 1)
Quarter: 2014Q1

REPORT INFORMATION
  Report Type: Spontaneous
  Country: CH (occurrence: None)
  Receive Date: 20140326
  Receipt Date: 20140326
  Transmission Date: 20141002
  Serious: Yes (Other)
  Sender: FDA-Public Use
  Company Number: None

PATIENT
  Age: 48 Year
  Sex: Female
  Weight: 68 kg

DRUGS (1)
  1. WELLBUTRIN XR [Suspect]
     Indication: DEPRESSION
     Dosage: 1 PIL PER DAY, ONCE DAILY, TAKEN BY MOUTH
     Route: 048

REACTIONS (1)
  - Alopecia [None]
